FAERS Safety Report 14562015 (Version 1)
Quarter: 2018Q1

REPORT INFORMATION
  Report Type: Spontaneous
  Country: US (occurrence: US)
  Receive Date: 20180221
  Receipt Date: 20180221
  Transmission Date: 20180509
  Serious: Yes (Other)
  Sender: FDA-Public Use
  Company Number: None

PATIENT
  Sex: Male
  Weight: 94.5 kg

DRUGS (2)
  1. TAMSULOSIN [Concomitant]
     Active Substance: TAMSULOSIN
  2. DULOXETINE. [Suspect]
     Active Substance: DULOXETINE
     Indication: DEPRESSION
     Dosage: ?          QUANTITY:1 CAPSULE(S);?
     Route: 048
     Dates: start: 20180108, end: 20180218

REACTIONS (6)
  - Wrong technique in product usage process [None]
  - Drug dose omission [None]
  - Depression [None]
  - Pain [None]
  - Incorrect dose administered [None]
  - Product substitution issue [None]

NARRATIVE: CASE EVENT DATE: 20180108
